FAERS Safety Report 17466772 (Version 1)
Quarter: 2020Q1

REPORT INFORMATION
  Report Type: Spontaneous
  Country: US (occurrence: US)
  Receive Date: 20200227
  Receipt Date: 20200227
  Transmission Date: 20200409
  Serious: No
  Sender: FDA-Public Use
  Company Number: US-GLAXOSMITHKLINE-US2020031372

PATIENT
  Age: 61 Year
  Sex: Female

DRUGS (4)
  1. ADVAIR DISKUS [Suspect]
     Active Substance: FLUTICASONE PROPIONATE\SALMETEROL XINAFOATE
     Dosage: 100/50 MCG
     Route: 065
     Dates: start: 202002
  2. ADVAIR DISKUS [Suspect]
     Active Substance: FLUTICASONE PROPIONATE\SALMETEROL XINAFOATE
     Dosage: 1 PUFF(S), QD, 250/50 MCG
     Route: 065
  3. ADVAIR HFA [Suspect]
     Active Substance: FLUTICASONE PROPIONATE\SALMETEROL XINAFOATE
     Indication: PRODUCT USED FOR UNKNOWN INDICATION
     Dosage: 1 PUFF(S)
     Route: 065
  4. ADVAIR DISKUS [Suspect]
     Active Substance: FLUTICASONE PROPIONATE\SALMETEROL XINAFOATE
     Indication: PRODUCT USED FOR UNKNOWN INDICATION
     Dosage: 2 PUFF(S), QD, 250/50 MCG
     Route: 065

REACTIONS (14)
  - Adverse drug reaction [Recovering/Resolving]
  - Dyspnoea [Unknown]
  - Ill-defined disorder [Unknown]
  - Tinnitus [Unknown]
  - Intentional product misuse [Unknown]
  - Lung disorder [Unknown]
  - Arthralgia [Unknown]
  - Muscle tightness [Unknown]
  - Muscle spasms [Unknown]
  - Malaise [Unknown]
  - Secretion discharge [Unknown]
  - Underdose [Unknown]
  - Chest discomfort [Unknown]
  - Therapeutic response shortened [Unknown]
